FAERS Safety Report 8513704 (Version 3)
Quarter: 2013Q1

REPORT INFORMATION
  Report Type: Spontaneous
  Country: IT (occurrence: None)
  Receive Date: 20120410
  Receipt Date: 20121210
  Transmission Date: 20140127
  Serious: Yes (Life-Threatening, Other)
  Sender: FDA-Public Use
  Company Number: MC201200193

PATIENT
  Age: 63 Year
  Sex: Female
  Weight: 76 kg

DRUGS (5)
  1. ANGIOMAX [Suspect]
     Indication: PERCUTANEOUS CORONARY INTERVENTION
     Dosage: BOLUS
     Route: 040
     Dates: start: 20120320, end: 20120321
  2. ASA [Concomitant]
  3. ATORVASTATIN CALCIUM [Concomitant]
  4. TICAGRELOR [Concomitant]
  5. HEPARIN [Concomitant]

REACTIONS (8)
  - Myocardial infarction [None]
  - Thrombosis in device [None]
  - Shock [None]
  - Vomiting [None]
  - Incorrect drug administration duration [None]
  - Drug ineffective [None]
  - Product quality issue [None]
  - Coronary artery stenosis [None]
